FAERS Safety Report 8473918-0 (Version None)
Quarter: 2012Q2

REPORT INFORMATION
  Report Type: 
  Country: None (occurrence: None)
  Receive Date: 20120628
  Receipt Date: 20120216
  Transmission Date: 20120825
  Serious: Yes (Death)
  Sender: FDA-Public Use
  Company Number: US-MYLANLABS-2012S1002500

PATIENT
  Age: 71 Year
  Sex: Male

DRUGS (10)
  1. LOPRESSOR [Concomitant]
  2. PREVACID [Concomitant]
  3. CLOZAPINE [Suspect]
     Route: 048
  4. LACTULOSE [Concomitant]
  5. DEPAKOTE [Concomitant]
  6. ASPIRIN [Concomitant]
  7. XOPENEX [Concomitant]
  8. DETROL [Concomitant]
  9. DUONEB [Concomitant]
  10. RISPERDAL [Concomitant]

REACTIONS (1)
  - ASPIRATION [None]
